FAERS Safety Report 7321836-3 (Version None)
Quarter: 2011Q1

REPORT INFORMATION
  Report Type: 
  Country: None (occurrence: None)
  Receive Date: 20110228
  Receipt Date: 20110223
  Transmission Date: 20110831
  Serious: Yes (Hospitalization)
  Sender: FDA-Public Use
  Company Number: JP-PFIZER INC-2010157986

PATIENT
  Age: 49 Year
  Sex: Female

DRUGS (4)
  1. RHEUMATREX [Suspect]
     Dosage: 6 MG, WEEKLY
     Route: 048
     Dates: start: 20070801, end: 20101020
  2. LOXONIN [Concomitant]
     Indication: RHEUMATOID ARTHRITIS
     Dosage: UNK
     Route: 048
     Dates: start: 20070801, end: 20101020
  3. AZULFIDINE [Suspect]
     Indication: RHEUMATOID ARTHRITIS
     Dosage: 1000MG/DAY
     Route: 048
     Dates: start: 20070801, end: 20081028
  4. ETANERCEPT [Concomitant]
     Dosage: 25 MG, 2X/WEEK
     Route: 058
     Dates: start: 20070801, end: 20101028

REACTIONS (2)
  - ANTINEUTROPHIL CYTOPLASMIC ANTIBODY POSITIVE [None]
  - LUPUS NEPHRITIS [None]
